FAERS Safety Report 24146789 (Version 6)
Quarter: 2025Q2

REPORT INFORMATION
  Report Type: Spontaneous
  Country: US (occurrence: US)
  Receive Date: 20240729
  Receipt Date: 20250425
  Transmission Date: 20250716
  Serious: Yes (Other)
  Sender: AMGEN
  Company Number: US-AMGEN-USASP2024147893

PATIENT
  Age: 60 Year
  Sex: Male

DRUGS (38)
  1. TEPEZZA [Suspect]
     Active Substance: TEPROTUMUMAB-TRBW
     Indication: Endocrine ophthalmopathy
     Dosage: 10 MILLIGRAM/KILOGRAM, Q3WK, (1080 MILLIGRAM) FIRST INFUSION)
     Route: 042
     Dates: start: 20230403
  2. TEPEZZA [Suspect]
     Active Substance: TEPROTUMUMAB-TRBW
     Dosage: 20 MILLIGRAM/KILOGRAM, Q3WK,(2160 MILLIGRAM) (SECOND INFUSION)
     Route: 042
     Dates: start: 20230424
  3. TEPEZZA [Suspect]
     Active Substance: TEPROTUMUMAB-TRBW
     Dosage: 20 MILLIGRAM/KILOGRAM, Q3WK, ,(2160 MILLIGRAM) (THIRD INFUSION)
     Route: 042
     Dates: start: 20230515
  4. TEPEZZA [Suspect]
     Active Substance: TEPROTUMUMAB-TRBW
     Dosage: 20 MILLIGRAM/KILOGRAM, Q3WK, ,(2160 MILLIGRAM) (FOURTH INFUSION)
     Route: 042
     Dates: start: 20230605
  5. TEPEZZA [Suspect]
     Active Substance: TEPROTUMUMAB-TRBW
     Dosage: 20 MILLIGRAM/KILOGRAM, Q3WK, ,(2160 MILLIGRAM), (FIFTH INFUSION)
     Route: 042
     Dates: start: 20230626
  6. PREDNISONE [Suspect]
     Active Substance: PREDNISONE
     Indication: Thyroiditis
     Dosage: 5 MILLIGRAM, 2 TIMES/WK (1 TABLET)
     Route: 048
  7. TROPICAMIDE [Concomitant]
     Active Substance: TROPICAMIDE
     Route: 065
  8. Depo testadiol [Concomitant]
     Route: 065
  9. SYSTANE BALANCE [Concomitant]
     Active Substance: PROPYLENE GLYCOL
     Route: 065
  10. GLIMEPIRIDE [Concomitant]
     Active Substance: GLIMEPIRIDE
  11. NOVOLIN L [Concomitant]
     Active Substance: INSULIN HUMAN
     Route: 065
  12. INSULIN NOS [Concomitant]
     Active Substance: INSULIN NOS
     Dosage: UNK UNK, TID ( 100 UNIT/ML INJECTION SOLUTION) (30 UNIT)
     Route: 065
  13. SYSTANE COMPLETE [Concomitant]
     Active Substance: PROPYLENE GLYCOL
     Route: 047
  14. TYLENOL [Concomitant]
     Active Substance: ACETAMINOPHEN
     Route: 048
  15. SYSTANE (HYPROMELLOSE 2910 (4000 MPA.S)) [Concomitant]
     Active Substance: HYPROMELLOSE 2910 (4000 MPA.S)
     Route: 047
  16. REFRESH LIQUIGEL [Concomitant]
     Active Substance: CARBOXYMETHYLCELLULOSE SODIUM
     Dosage: UNK UNK, QD (BEDTIME)
     Route: 047
  17. LISINOPRIL AND HYDROCHLOROTHIAZIDE [Concomitant]
     Active Substance: HYDROCHLOROTHIAZIDE\LISINOPRIL
     Route: 048
  18. LOSARTAN POTASSIUM [Concomitant]
     Active Substance: LOSARTAN POTASSIUM
     Dosage: 50 MILLIGRAM, QD (1 TABLET)
     Route: 048
  19. OZEMPIC [Concomitant]
     Active Substance: SEMAGLUTIDE
     Dosage: UNK UNK, QWK ( (1 MG/DOSE) 4 MG/3ML SOLUTION)
     Route: 058
  20. OZEMPIC [Concomitant]
     Active Substance: SEMAGLUTIDE
     Dosage: UNK, QWK (2 MG/3ML SOLUTION) FIRST MONTH
     Route: 058
  21. OZEMPIC [Concomitant]
     Active Substance: SEMAGLUTIDE
     Dosage: UNK, QWK (2 MG/3ML SOLUTION) SECOND MONTH
     Route: 058
  22. OZEMPIC [Concomitant]
     Active Substance: SEMAGLUTIDE
     Dosage: UNK, QWK (4 MG/3ML SOLUTION) THIRD MONTH
     Route: 058
  23. OZEMPIC [Concomitant]
     Active Substance: SEMAGLUTIDE
     Dosage: 0.25 MILLIGRAM, QWK (FOR FOUR WEEK)
     Route: 058
  24. OZEMPIC [Concomitant]
     Active Substance: SEMAGLUTIDE
     Dosage: 0.5 MILLIGRAM, QWK (FOR 2 WEEKS)
     Route: 058
  25. LANTUS [Concomitant]
     Active Substance: INSULIN GLARGINE
     Dosage: 1 UNIT, TID (100 UNIT/ML SOLUTION INJECT 1 UNIT UNDER THE SKIN FOR EVERY 15G OF CARBS)
  26. SYNTHROID [Concomitant]
     Active Substance: LEVOTHYROXINE SODIUM
     Route: 065
  27. VITAMIN C [Concomitant]
     Active Substance: ASCORBIC ACID
     Dosage: 1000 MICROGRAM, QD
     Route: 048
  28. VITAMIN D3 [Concomitant]
     Active Substance: CHOLECALCIFEROL
     Dosage: 5000 UNIT, QD
     Route: 048
  29. NEXIUM [Concomitant]
     Active Substance: ESOMEPRAZOLE MAGNESIUM
     Dosage: 20 MILLIGRAM, QD
     Route: 048
  30. EZETIMIBE [Concomitant]
     Active Substance: EZETIMIBE
     Dosage: 10 MILLIGRAM, QD
     Route: 048
     Dates: start: 20230607
  31. LIOTHYRONINE SODIUM [Concomitant]
     Active Substance: LIOTHYRONINE SODIUM
     Dosage: 5 MICROGRAM, QD (TAKE 2 TABLETS ON AN EMPTY STOMACH)
     Route: 048
     Dates: start: 20240813
  32. MELATONIN [Concomitant]
     Active Substance: MELATONIN
     Dosage: 5 MILLIGRAM, QD
     Route: 048
  33. VITAMINS [Concomitant]
     Active Substance: VITAMINS
     Dosage: UNK UNK, QD (1 TABLET)
     Route: 048
  34. HERBALS\SAW PALMETTO [Concomitant]
     Active Substance: HERBALS\SAW PALMETTO
     Dosage: UNK UNK, BID ( 1 CAPSULE)
     Route: 048
  35. TESTOSTERONE [Concomitant]
     Active Substance: TESTOSTERONE
     Dosage: 100 MILLIGRAM, QWK
     Route: 030
     Dates: start: 20220928
  36. VITAMIN E [Concomitant]
     Active Substance: .ALPHA.-TOCOPHEROL
     Dosage: 1000 UNIT, QD
     Route: 048
  37. TAPAZOLE [Concomitant]
     Active Substance: METHIMAZOLE
     Indication: Autoimmune thyroiditis
  38. AZITHROMYCIN [Concomitant]
     Active Substance: AZITHROMYCIN
     Dosage: 500 MILLIGRAM, QD
     Route: 048

REACTIONS (75)
  - Acute kidney injury [Unknown]
  - Deafness neurosensory [Not Recovered/Not Resolved]
  - Cataract [Unknown]
  - Type 2 diabetes mellitus [Unknown]
  - Chronic kidney disease [Unknown]
  - Hyperthyroidism [Unknown]
  - Hepatocellular injury [Unknown]
  - Autoimmune thyroiditis [Unknown]
  - Adrenal neoplasm [Unknown]
  - Irritable bowel syndrome [Unknown]
  - Dehydration [Unknown]
  - Emotional distress [Not Recovered/Not Resolved]
  - Anxiety [Not Recovered/Not Resolved]
  - Fatigue [Unknown]
  - Muscle spasms [Unknown]
  - Nausea [Unknown]
  - Alopecia [Recovering/Resolving]
  - Hyperglycaemia [Unknown]
  - Product use complaint [Unknown]
  - Madarosis [Unknown]
  - Dry eye [Unknown]
  - Exposure keratitis [Unknown]
  - Lymphadenopathy [Unknown]
  - Vitreous floaters [Unknown]
  - Lacrimation increased [Unknown]
  - Herpes zoster [Unknown]
  - Blood homocysteine increased [Unknown]
  - Blood sodium decreased [Unknown]
  - Blood chloride decreased [Unknown]
  - Protein total increased [Unknown]
  - Blood alkaline phosphatase decreased [Unknown]
  - Aspartate aminotransferase increased [Unknown]
  - Primary hypogonadism [Unknown]
  - Diarrhoea [Unknown]
  - Thyroiditis chronic [Unknown]
  - Hyperhomocysteinaemia [Unknown]
  - Hypertension [Unknown]
  - Vitamin D deficiency [Unknown]
  - Somnolence [Unknown]
  - Irritability [Unknown]
  - Onychoclasis [Unknown]
  - Toothache [Recovered/Resolved]
  - Memory impairment [Unknown]
  - Brain fog [Unknown]
  - Insomnia [Unknown]
  - Weight decreased [Recovered/Resolved]
  - Swelling [Unknown]
  - Erythema [Not Recovered/Not Resolved]
  - Goitre [Unknown]
  - Liver function test increased [Unknown]
  - Intervertebral disc disorder [Unknown]
  - Benign prostatic hyperplasia [Unknown]
  - Proteinuria [Unknown]
  - Obstructive sleep apnoea syndrome [Unknown]
  - Cholelithiasis [Unknown]
  - Hepatic steatosis [Unknown]
  - Cough [Unknown]
  - Upper respiratory tract infection [Unknown]
  - Bronchitis [Unknown]
  - Metabolic dysfunction-associated liver disease [Unknown]
  - Hypercalcaemia [Unknown]
  - Rotator cuff tear arthropathy [Unknown]
  - Type V hyperlipidaemia [Unknown]
  - Testicular disorder [Unknown]
  - Polycythaemia [Unknown]
  - Blood parathyroid hormone decreased [Unknown]
  - Cystatin C increased [Unknown]
  - Off label use [Unknown]
  - Blood testosterone free increased [Unknown]
  - Blood cholesterol increased [Unknown]
  - High density lipoprotein decreased [Unknown]
  - Blood triglycerides increased [Unknown]
  - Total cholesterol/HDL ratio increased [Unknown]
  - Non-high-density lipoprotein cholesterol increased [Unknown]
  - Blood glucose increased [Unknown]

NARRATIVE: CASE EVENT DATE: 20230101
